FAERS Safety Report 19672821 (Version 5)
Quarter: 2021Q4

REPORT INFORMATION
  Report Type: Report from Study
  Country: US (occurrence: US)
  Receive Date: 20210809
  Receipt Date: 20211218
  Transmission Date: 20220303
  Serious: Yes (Hospitalization, Other)
  Sender: FDA-Public Use
  Company Number: NVSC2021US174494

PATIENT
  Sex: Female

DRUGS (3)
  1. ENTRESTO [Suspect]
     Active Substance: SACUBITRIL\VALSARTAN
     Indication: Cardiac failure
     Dosage: 50 MG (24/26 MG),  UNKNOWN
     Route: 048
     Dates: start: 20201208
  2. ENTRESTO [Suspect]
     Active Substance: SACUBITRIL\VALSARTAN
     Dosage: 50 MG (24/26 MG), BID
     Route: 048
     Dates: start: 202012
  3. ELIQUIS [Concomitant]
     Active Substance: APIXABAN
     Indication: Product used for unknown indication
     Dosage: UNK
     Route: 065

REACTIONS (26)
  - Thrombosis [Unknown]
  - Cholelithiasis [Unknown]
  - Colitis [Unknown]
  - Gastrointestinal ulcer haemorrhage [Unknown]
  - Cerebrovascular accident [Unknown]
  - Haemorrhage [Unknown]
  - Hallucination [Unknown]
  - Pain [Unknown]
  - Cataract [Unknown]
  - Renal failure [Unknown]
  - Tremor [Unknown]
  - Hypoaesthesia [Unknown]
  - Cardiac disorder [Unknown]
  - Gait disturbance [Unknown]
  - Oedema peripheral [Unknown]
  - Fear [Unknown]
  - Illness [Unknown]
  - Feeling abnormal [Unknown]
  - Muscular weakness [Not Recovered/Not Resolved]
  - Dysgraphia [Recovering/Resolving]
  - Skin lesion [Unknown]
  - Mobility decreased [Recovering/Resolving]
  - Memory impairment [Unknown]
  - Blood glucose abnormal [Recovering/Resolving]
  - Fatigue [Unknown]
  - Product availability issue [Unknown]
